FAERS Safety Report 6689877-7 (Version None)
Quarter: 2010Q2

REPORT INFORMATION
  Report Type: 
  Country: None (occurrence: None)
  Receive Date: 20100412
  Receipt Date: 20100119
  Transmission Date: 20101027
  Serious: No
  Sender: FDA-Public Use
  Company Number: 1000011393

PATIENT
  Age: 70 Year
  Sex: Female

DRUGS (6)
  1. BYSTOLIC [Suspect]
     Indication: HYPERTENSION
     Dosage: 5 MG (5 MG, 1 IN 1 D), ORAL
     Route: 048
     Dates: start: 20091016, end: 20091020
  2. PRAVASTATIN [Concomitant]
  3. ATACAND [Concomitant]
  4. TEKTURNA [Concomitant]
  5. OMEPRAZOLE [Concomitant]
  6. VITAMIN D [Concomitant]

REACTIONS (5)
  - BLOOD PRESSURE INCREASED [None]
  - CHILLS [None]
  - DRUG INEFFECTIVE [None]
  - NIGHT SWEATS [None]
  - SLEEP DISORDER [None]
